FAERS Safety Report 5504765-7 (Version None)
Quarter: 2007Q4

REPORT INFORMATION
  Report Type: 
  Country: None (occurrence: None)
  Receive Date: 20071031
  Receipt Date: 20071031
  Transmission Date: 20080405
  Serious: Yes (Hospitalization)
  Sender: FDA-Public Use
  Company Number: None

PATIENT
  Age: 58 Year
  Sex: Male

DRUGS (3)
  1. AMBIEN CR [Suspect]
     Indication: ANXIETY DISORDER
     Dosage: 12.5 MG PO
     Route: 048
  2. AMBIEN CR [Suspect]
     Indication: MENTAL STATUS CHANGES
     Dosage: 12.5 MG PO
     Route: 048
  3. AMITRIPTYLINE HCL [Suspect]
     Dosage: 50 MG PO
     Route: 048

REACTIONS (4)
  - AGITATION [None]
  - AMNESIA [None]
  - CONFUSIONAL STATE [None]
  - OBSESSIVE-COMPULSIVE DISORDER [None]
